FAERS Safety Report 5130870-3 (Version None)
Quarter: 2006Q4

REPORT INFORMATION
  Report Type: 
  Country: None (occurrence: None)
  Receive Date: 20061019
  Receipt Date: 20060321
  Transmission Date: 20070319
  Serious: Yes (Death)
  Sender: FDA-Public Use
  Company Number: US-SANOFI-SYNTHELABO-A03200601648

PATIENT
  Sex: Female
  Weight: 41.72 kg

DRUGS (10)
  1. PLAVIX [Suspect]
     Indication: CARDIAC FAILURE CONGESTIVE
     Route: 048
     Dates: start: 20030701
  2. PLAVIX [Suspect]
     Indication: CARDIAC VALVE DISEASE
     Route: 048
     Dates: start: 20030701
  3. AMBIEN [Concomitant]
     Route: 048
  4. CLARITIN [Concomitant]
     Route: 048
  5. LISINOPRIL [Concomitant]
     Route: 048
  6. POTASSIUM [Concomitant]
     Route: 048
  7. SYNTHROID [Concomitant]
     Route: 048
  8. LASIX [Concomitant]
     Route: 048
  9. DIGOXIN [Concomitant]
     Route: 048
  10. TOPROL-XL [Concomitant]
     Route: 048

REACTIONS (1)
  - CARDIAC DISORDER [None]
